FAERS Safety Report 21227757 (Version 2)
Quarter: 2025Q4

REPORT INFORMATION
  Report Type: Spontaneous
  Country: EU (occurrence: EU)
  Receive Date: 20220818
  Receipt Date: 20251015
  Transmission Date: 20260118
  Serious: No
  Sender: ORGANON
  Company Number: EU-ORGANON-O2208ESP001292

PATIENT
  Age: 20 Year
  Sex: Female

DRUGS (1)
  1. ETONOGESTREL [Suspect]
     Active Substance: ETONOGESTREL
     Dosage: 1 IMPLANT

REACTIONS (8)
  - Sensory disturbance [Unknown]
  - Hypoaesthesia [Unknown]
  - Middle insomnia [Unknown]
  - Implant site inflammation [Unknown]
  - Implant site nerve injury [Unknown]
  - Implant site irritation [Unknown]
  - Implant site pain [Unknown]
  - Medical device site discomfort [Recovering/Resolving]

NARRATIVE: CASE EVENT DATE: 20220701
